FAERS Safety Report 21629189 (Version 10)
Quarter: 2025Q2

REPORT INFORMATION
  Report Type: Spontaneous
  Country: IN (occurrence: IN)
  Receive Date: 20221122
  Receipt Date: 20250625
  Transmission Date: 20250716
  Serious: Yes (Other)
  Sender: PFIZER
  Company Number: IN-PFIZER INC-2020426091

PATIENT
  Age: 66 Year
  Sex: Female

DRUGS (14)
  1. SUTENT [Suspect]
     Active Substance: SUNITINIB MALATE
     Indication: Metastatic renal cell carcinoma
     Dosage: 50 MG, 1X/DAY (1-0-0)
     Route: 048
     Dates: start: 20201009
  2. SUTENT [Suspect]
     Active Substance: SUNITINIB MALATE
     Dates: end: 202107
  3. SUTENT [Suspect]
     Active Substance: SUNITINIB MALATE
     Dates: start: 202110
  4. SUTENT [Suspect]
     Active Substance: SUNITINIB MALATE
     Dates: start: 20210904, end: 2022
  5. SUTENT [Suspect]
     Active Substance: SUNITINIB MALATE
     Route: 048
     Dates: start: 20221019
  6. SUTENT [Suspect]
     Active Substance: SUNITINIB MALATE
     Route: 048
  7. SUTENT [Suspect]
     Active Substance: SUNITINIB MALATE
     Dosage: 12.5 MG, 1X/DAY OD
     Route: 048
  8. ZOLEDRONIC ACID [Concomitant]
     Active Substance: ZOLEDRONIC ACID
     Route: 042
  9. PAN [Concomitant]
     Indication: Gastritis
     Dosage: 40 MG, 1X/DAY (1-0-0 (BEFORE FOOD))
  10. ONCOLIFE PLUS [Concomitant]
     Dosage: UNK, 1X/DAY (0-1-0 AFTER FOOD)
  11. DUPHALAC [Concomitant]
     Active Substance: LACTULOSE
     Indication: Constipation
     Dosage: 10 ML, 3X/DAY (THREE TIMES A DAY)
  12. SUPRACAL [CALCIUM] [Concomitant]
     Dosage: UNK, 1X/DAY (0 - 1 - 0 AFTER FOOD)
  13. RENERVE PLUS [MECOBALAMIN;NICOTINAMIDE;PYRIDOXINE HYDROCHLORIDE] [Concomitant]
     Dosage: UNK, 2X/DAY (1-0-1 AFTER FOOD)
  14. PREGABALIN [Concomitant]
     Active Substance: PREGABALIN
     Dosage: 75 MG, 1X/DAY ( 0-0-1)

REACTIONS (8)
  - Chronic kidney disease [Unknown]
  - Pericardial effusion [Recovered/Resolved]
  - Generalised oedema [Recovering/Resolving]
  - Gait disturbance [Unknown]
  - Dehydration [Unknown]
  - Asthenia [Recovered/Resolved]
  - Stomatitis [Unknown]
  - Off label use [Unknown]

NARRATIVE: CASE EVENT DATE: 20210801
